FAERS Safety Report 9918080 (Version 1)
Quarter: 2014Q1

REPORT INFORMATION
  Report Type: Spontaneous
  Country: IT (occurrence: IT)
  Receive Date: 20140223
  Receipt Date: 20140223
  Transmission Date: 20141002
  Serious: Yes (Life-Threatening)
  Sender: FDA-Public Use
  Company Number: IT-TEVA-462476ISR

PATIENT
  Age: 88 Year
  Sex: Female
  Weight: 70 kg

DRUGS (2)
  1. AMIODARONE HYDROCHLORIDE [Suspect]
     Indication: SUPRAVENTRICULAR TACHYCARDIA
     Route: 048
     Dates: start: 20140110
  2. PRADAXA - 110 MG CAPSULA RIGIDA [Interacting]
     Indication: SUPRAVENTRICULAR TACHYCARDIA
     Route: 048
     Dates: start: 20140113, end: 20140202

REACTIONS (2)
  - Rectal haemorrhage [Recovered/Resolved]
  - Drug interaction [Recovered/Resolved]
